FAERS Safety Report 6244557-7 (Version None)
Quarter: 2009Q2

REPORT INFORMATION
  Report Type: 
  Country: None (occurrence: None)
  Receive Date: 20090625
  Receipt Date: 20090616
  Transmission Date: 20091009
  Serious: Yes (Hospitalization)
  Sender: FDA-Public Use
  Company Number: US-RB-017311-09

PATIENT
  Age: 35 Year
  Sex: Female

DRUGS (1)
  1. DELSYM ADULT ORANGE [Suspect]
     Dosage: DRANK APPROX HALF OF THE BOTTLE
     Route: 048
     Dates: start: 20090614

REACTIONS (3)
  - ACCIDENTAL OVERDOSE [None]
  - DIZZINESS [None]
  - VISION BLURRED [None]
